FAERS Safety Report 13732560 (Version 1)
Quarter: 2017Q3

REPORT INFORMATION
  Report Type: Spontaneous
  Country: DK (occurrence: DK)
  Receive Date: 20170707
  Receipt Date: 20170707
  Transmission Date: 20171127
  Serious: Yes (Other)
  Sender: FDA-Public Use
  Company Number: DK-MYLANLABS-2017M1040195

PATIENT

DRUGS (2)
  1. TRAMADOL. [Suspect]
     Active Substance: TRAMADOL
     Indication: PAIN
  2. TRAMADOL. [Suspect]
     Active Substance: TRAMADOL
     Indication: JOINT INJURY
     Route: 048
     Dates: start: 2009

REACTIONS (11)
  - Back pain [Unknown]
  - Feeling cold [Unknown]
  - Tremor [Unknown]
  - Muscle spasms [Unknown]
  - Withdrawal syndrome [Unknown]
  - Hyperhidrosis [Unknown]
  - Pain [Unknown]
  - Pain in extremity [Unknown]
  - Drug dependence [Unknown]
  - Restlessness [Unknown]
  - Overdose [Unknown]
